FAERS Safety Report 16004655 (Version 1)
Quarter: 2019Q1

REPORT INFORMATION
  Report Type: Spontaneous
  Country: US (occurrence: US)
  Receive Date: 20190225
  Receipt Date: 20190225
  Transmission Date: 20190418
  Serious: Yes (Death)
  Sender: FDA-Public Use
  Company Number: None

PATIENT
  Age: 65 Year
  Sex: Female

DRUGS (3)
  1. SODIUM CHLORIDE 0.9% 1000ML [Suspect]
     Active Substance: SODIUM CHLORIDE
     Indication: BRONCHIECTASIS
     Route: 055
     Dates: start: 20180417
  2. C - AMIKACIN 500MG INH [Concomitant]
     Dates: start: 20180417
  3. AMIKACIN SULFATE. [Suspect]
     Active Substance: AMIKACIN SULFATE
     Indication: BRONCHIECTASIS
     Route: 055
     Dates: start: 20180417

REACTIONS (1)
  - Death [None]
